FAERS Safety Report 22085581 (Version 3)
Quarter: 2023Q1

REPORT INFORMATION
  Report Type: Spontaneous
  Country: FR (occurrence: None)
  Receive Date: 20230310
  Receipt Date: 20230331
  Transmission Date: 20230418
  Serious: Yes (Hospitalization)
  Sender: FDA-Public Use
  Company Number: 2023A055746

PATIENT
  Age: 85 Year
  Sex: Male

DRUGS (1)
  1. DAPAGLIFLOZIN [Suspect]
     Active Substance: DAPAGLIFLOZIN
     Indication: Cardiac failure
     Dosage: 10MG ONCE EVERY 2 DAYS.
     Route: 048
     Dates: start: 20221225, end: 20230110

REACTIONS (18)
  - Liver disorder [Unknown]
  - Jaundice [Unknown]
  - International normalised ratio increased [Unknown]
  - Cholelithiasis [Unknown]
  - Bile duct stone [Unknown]
  - Nausea [Unknown]
  - Vomiting [Unknown]
  - Constipation [Unknown]
  - Abdominal distension [Unknown]
  - Angina pectoris [Unknown]
  - Middle insomnia [Unknown]
  - Decreased appetite [Unknown]
  - Lithiasis [Unknown]
  - Hyperhidrosis [Unknown]
  - Tremor [Unknown]
  - Fatigue [Unknown]
  - Thirst [Unknown]
  - Off label use [Unknown]
